FAERS Safety Report 9855962 (Version 1)
Quarter: 2014Q1

REPORT INFORMATION
  Report Type: Spontaneous
  Country: US (occurrence: US)
  Receive Date: 20140130
  Receipt Date: 20140130
  Transmission Date: 20141002
  Serious: No
  Sender: FDA-Public Use
  Company Number: US-BAXTER-2014BAX003277

PATIENT
  Sex: Female

DRUGS (2)
  1. DIANEAL LOW CALCIUM [Suspect]
     Indication: PERITONEAL DIALYSIS
     Dosage: 2 BAGS
     Route: 033
     Dates: start: 201307
  2. DIANEAL LOW CALCIUM [Suspect]
     Indication: PERITONEAL DIALYSIS
     Dosage: 1 BAG
     Route: 033
     Dates: start: 201307

REACTIONS (5)
  - Breast cancer [Not Recovered/Not Resolved]
  - Rhinorrhoea [Recovering/Resolving]
  - Chills [Recovering/Resolving]
  - Blood phosphorus increased [Recovering/Resolving]
  - Dyspnoea [Recovering/Resolving]
